FAERS Safety Report 8926595 (Version 2)
Quarter: 2012Q4

REPORT INFORMATION
  Report Type: 
  Country: IT (occurrence: IT)
  Receive Date: 20121127
  Receipt Date: 20121127
  Transmission Date: 20130627
  Serious: Yes (Other)
  Sender: FDA-Public Use
  Company Number: PHHY2012IT105452

PATIENT
  Age: 72 Year
  Sex: Female

DRUGS (7)
  1. TASIGNA [Suspect]
     Indication: CHRONIC MYELOID LEUKAEMIA
     Dosage: 800 mg, daily
     Route: 048
     Dates: start: 20120910, end: 20121010
  2. TASIGNA [Suspect]
     Dosage: 400 mg, daily
     Dates: start: 20121110
  3. IDROQUARK [Concomitant]
     Route: 048
  4. EUTIROX [Concomitant]
     Route: 048
  5. LASIX [Concomitant]
     Route: 048
  6. TINSET [Concomitant]
     Route: 048
  7. LACTIC ACID [Concomitant]
     Route: 048

REACTIONS (2)
  - Angioedema [Unknown]
  - Pruritus [Unknown]
